FAERS Safety Report 6983729-0 (Version None)
Quarter: 2010Q3

REPORT INFORMATION
  Report Type: 
  Country: None (occurrence: None)
  Receive Date: 20100914
  Receipt Date: 20051125
  Transmission Date: 20110219
  Serious: Yes (Life-Threatening, Hospitalization)
  Sender: FDA-Public Use
  Company Number: US-WYE-H07148008

PATIENT
  Age: 46 Year
  Sex: Male
  Weight: 97.61 kg

DRUGS (2)
  1. IBUPROFEN [Suspect]
     Dosage: UNKNOWN
     Route: 048
  2. KETOROLAC TROMETHAMINE [Suspect]
     Dosage: UNKNOWN
     Route: 065

REACTIONS (2)
  - HAEMORRHAGE INTRACRANIAL [None]
  - MENINGITIS ASEPTIC [None]
